FAERS Safety Report 5233162-7 (Version None)
Quarter: 2007Q1

REPORT INFORMATION
  Report Type: 
  Country: None (occurrence: None)
  Receive Date: 20070207
  Receipt Date: 20070126
  Transmission Date: 20070707
  Serious: Yes (Hospitalization)
  Sender: FDA-Public Use
  Company Number: FR-PFIZER INC-2007007599

PATIENT
  Age: 79 Year
  Sex: Female

DRUGS (8)
  1. ALPRESS [Suspect]
     Indication: ESSENTIAL HYPERTENSION
     Route: 048
  2. FLUINDIONE [Suspect]
     Indication: CARDIOMYOPATHY
     Route: 048
     Dates: start: 20060715, end: 20060921
  3. COZAAR [Concomitant]
     Indication: ESSENTIAL HYPERTENSION
     Dosage: DAILY DOSE:100MG
     Route: 048
  4. NITROGLYCERIN [Concomitant]
     Indication: ANGINA PECTORIS
     Dosage: DAILY DOSE:10MG
     Route: 062
  5. LASIX [Concomitant]
     Route: 048
  6. MONO-TILDIEM [Concomitant]
     Indication: CARDIOMYOPATHY
     Dosage: DAILY DOSE:200MG
     Route: 048
  7. ANASTROZOLE [Concomitant]
     Indication: BREAST CANCER
  8. DIFFU K [Concomitant]

REACTIONS (1)
  - RECTAL HAEMORRHAGE [None]
